FAERS Safety Report 19498777 (Version 1)
Quarter: 2021Q3

REPORT INFORMATION
  Report Type: Spontaneous
  Country: DE (occurrence: DE)
  Receive Date: 20210706
  Receipt Date: 20210706
  Transmission Date: 20211014
  Serious: Yes (Other)
  Sender: FDA-Public Use
  Company Number: NVSC2021DE147238

PATIENT
  Sex: Female

DRUGS (1)
  1. PANTOPRAZOLE SODIUM. [Suspect]
     Active Substance: PANTOPRAZOLE SODIUM
     Indication: DUODENAL ULCER
     Dosage: UNK
     Route: 065
     Dates: start: 202102

REACTIONS (1)
  - Carcinoembryonic antigen increased [Unknown]

NARRATIVE: CASE EVENT DATE: 202104
